FAERS Safety Report 7950523-3 (Version None)
Quarter: 2011Q4

REPORT INFORMATION
  Report Type: 
  Country: None (occurrence: None)
  Receive Date: 20111130
  Receipt Date: 20111118
  Transmission Date: 20120403
  Serious: Yes (Other)
  Sender: FDA-Public Use
  Company Number: US-ASTRAZENECA-2011SE56788

PATIENT
  Age: 46 Year
  Sex: Female

DRUGS (1)
  1. SYMBICORT [Suspect]
     Route: 055

REACTIONS (4)
  - FOOT FRACTURE [None]
  - FEELING ABNORMAL [None]
  - ROTATOR CUFF SYNDROME [None]
  - DRUG DOSE OMISSION [None]
